FAERS Safety Report 23340824 (Version 1)
Quarter: 2023Q4

REPORT INFORMATION
  Report Type: Spontaneous
  Country: US (occurrence: US)
  Receive Date: 20231227
  Receipt Date: 20231227
  Transmission Date: 20240110
  Serious: Yes (Other)
  Sender: FDA-Public Use
  Company Number: US-CIPLA LTD.-2023US08259

PATIENT

DRUGS (3)
  1. FINASTERIDE [Suspect]
     Active Substance: FINASTERIDE
     Indication: Transgender hormonal therapy
     Dosage: UNK
     Route: 048
  2. ESTRADIOL [Suspect]
     Active Substance: ESTRADIOL
     Indication: Transgender hormonal therapy
     Dosage: 40 MG (IM EVERY 2 WEEKS)
     Route: 030
  3. SPIRONOLACTONE [Suspect]
     Active Substance: SPIRONOLACTONE
     Indication: Transgender hormonal therapy
     Dosage: 100 MILLIGRAM, QD
     Route: 048

REACTIONS (1)
  - Dacryostenosis acquired [Unknown]
